FAERS Safety Report 26054498 (Version 1)
Quarter: 2025Q4

REPORT INFORMATION
  Report Type: Spontaneous
  Country: EU (occurrence: EU)
  Receive Date: 20251117
  Receipt Date: 20251117
  Transmission Date: 20260118
  Serious: Yes (Other)
  Sender: ALCON
  Company Number: EU-SANTEN OY-2025-DEU-010195

PATIENT

DRUGS (2)
  1. LATANOPROST\NETARSUDIL MESYLATE [Suspect]
     Active Substance: LATANOPROST\NETARSUDIL MESYLATE
     Indication: Ocular hypertension
     Dosage: UNK
     Route: 047
  2. DORZOLAMIDE HYDROCHLORIDE\TIMOLOL MALEATE [Concomitant]
     Active Substance: DORZOLAMIDE HYDROCHLORIDE\TIMOLOL MALEATE
     Indication: Product used for unknown indication
     Dosage: UNK
     Route: 065

REACTIONS (7)
  - Cerebrovascular accident [Unknown]
  - Off label use [Unknown]
  - Product storage error [Unknown]
  - Drug ineffective [Unknown]
  - Accidental overdose [Unknown]
  - Product administration error [Unknown]
  - Product delivery mechanism issue [Unknown]
